FAERS Safety Report 19778463 (Version 1)
Quarter: 2021Q3

REPORT INFORMATION
  Report Type: Spontaneous
  Country: US (occurrence: US)
  Receive Date: 20210902
  Receipt Date: 20210902
  Transmission Date: 20211014
  Serious: Yes (Other)
  Sender: FDA-Public Use
  Company Number: NVSC2021US194220

PATIENT
  Age: 50 Year
  Sex: Female

DRUGS (1)
  1. KESIMPTA [Suspect]
     Active Substance: OFATUMUMAB
     Indication: MULTIPLE SCLEROSIS
     Dosage: 20 MG (BENEATH THE SKIN, USUALLY VIA INJECTION)
     Route: 058
     Dates: start: 202011, end: 202108

REACTIONS (4)
  - Cardiac flutter [Recovered/Resolved]
  - Pollakiuria [Recovered/Resolved]
  - Palpitations [Recovered/Resolved]
  - Dizziness [Recovered/Resolved]

NARRATIVE: CASE EVENT DATE: 20210806
